FAERS Safety Report 7229668-1 (Version None)
Quarter: 2011Q1

REPORT INFORMATION
  Report Type: 
  Country: None (occurrence: None)
  Receive Date: 20110117
  Receipt Date: 20110114
  Transmission Date: 20110831
  Serious: Yes (Life-Threatening, Hospitalization)
  Sender: FDA-Public Use
  Company Number: PHHY2011FR01451

PATIENT
  Sex: Male

DRUGS (4)
  1. CORTANCYL [Suspect]
     Indication: MULTIPLE SCLEROSIS
     Dosage: 20 MG, QD
     Route: 048
     Dates: start: 20070101, end: 20101125
  2. TEGRETOL [Suspect]
     Indication: DYSARTHRIA
     Dosage: UNK
     Route: 048
     Dates: start: 20100901, end: 20101125
  3. VOLTARENE LP [Suspect]
     Indication: POLYMYALGIA RHEUMATICA
     Dosage: 75 MG, BID
     Route: 048
     Dates: start: 20070101, end: 20101125
  4. PARACETAMOL [Concomitant]
     Dosage: UNK
     Dates: start: 20070101

REACTIONS (10)
  - LYMPHADENOPATHY [None]
  - CHROMATURIA [None]
  - AGITATION [None]
  - DRUG RASH WITH EOSINOPHILIA AND SYSTEMIC SYMPTOMS [None]
  - CYTOLYTIC HEPATITIS [None]
  - RENAL FAILURE [None]
  - LYMPHOCYTOSIS [None]
  - EOSINOPHILIA [None]
  - DRUG ERUPTION [None]
  - PYREXIA [None]
